FAERS Safety Report 24444991 (Version 1)
Quarter: 2024Q4

REPORT INFORMATION
  Report Type: Spontaneous
  Country: MX (occurrence: MX)
  Receive Date: 20241016
  Receipt Date: 20241016
  Transmission Date: 20250115
  Serious: Yes (Death)
  Sender: JOHNSON AND JOHNSON
  Company Number: MX-BAYER-2024A145873

PATIENT
  Age: 53 Year
  Sex: Female
  Weight: 57 kg

DRUGS (1)
  1. RIVAROXABAN [Suspect]
     Active Substance: RIVAROXABAN
     Indication: Product used for unknown indication
     Dosage: 20 MG
     Route: 048

REACTIONS (2)
  - Death [Fatal]
  - Product prescribing issue [Unknown]

NARRATIVE: CASE EVENT DATE: 20240703
